FAERS Safety Report 21959476 (Version 1)
Quarter: 2023Q1

REPORT INFORMATION
  Report Type: Spontaneous
  Country: SE (occurrence: SE)
  Receive Date: 20230206
  Receipt Date: 20230206
  Transmission Date: 20230418
  Serious: Yes (Other)
  Sender: FDA-Public Use
  Company Number: None

PATIENT
  Age: 37 Year
  Sex: Female
  Weight: 65 kg

DRUGS (1)
  1. MIRENA [Suspect]
     Active Substance: LEVONORGESTREL
     Indication: Contraception
     Dosage: 20?G/DAY
     Route: 015
     Dates: start: 20210320

REACTIONS (6)
  - Suicidal ideation [Unknown]
  - Apathy [Unknown]
  - Agitation [Unknown]
  - Anxiety [Not Recovered/Not Resolved]
  - Nausea [Unknown]
  - Depression suicidal [Unknown]

NARRATIVE: CASE EVENT DATE: 20210601
